FAERS Safety Report 16659401 (Version 7)
Quarter: 2021Q3

REPORT INFORMATION
  Report Type: Report from Study
  Country: RU (occurrence: RU)
  Receive Date: 20190802
  Receipt Date: 20210831
  Transmission Date: 20211014
  Serious: Yes (Death, Hospitalization)
  Sender: FDA-Public Use
  Company Number: RU-ROCHE-2366841

PATIENT
  Age: 65 Year
  Sex: Male
  Weight: 114 kg

DRUGS (19)
  1. CARBOPLATIN. [Suspect]
     Active Substance: CARBOPLATIN
     Indication: NON-SMALL CELL LUNG CANCER
     Dosage: AUC OF 6 MG/ML/MIN WILL BE ADMINISTERED INTRAVENOUSLY ON DAY 1 OF EACH 21?DAY CYCLE AS PER PROTOCOL
     Route: 042
     Dates: start: 20190403
  2. THYROSOL [Concomitant]
     Indication: HYPERTHYROIDISM
     Dates: start: 20190604
  3. INSPRA [Concomitant]
     Active Substance: EPLERENONE
  4. VAMLOSET [Concomitant]
     Indication: HYPERTENSION
  5. DIUVER [Concomitant]
     Active Substance: TORSEMIDE
  6. NAB?PACLITAXEL [Suspect]
     Active Substance: PACLITAXEL
     Indication: NON-SMALL CELL LUNG CANCER
     Dosage: NAB?PACLITAXEL 100 MG/M^2 WILL BE ADMINISTERED INTRAVENOUSLY ON DAYS 1, 8, AND 15 OF EACH 21 DAY CYC
     Route: 042
     Dates: start: 20190403
  7. DEXAMETHASONE. [Concomitant]
     Active Substance: DEXAMETHASONE
     Indication: AUTOIMMUNE EYE DISORDER
     Route: 048
     Dates: start: 20190707, end: 20190715
  8. ATEZOLIZUMAB. [Suspect]
     Active Substance: ATEZOLIZUMAB
     Indication: NON-SMALL CELL LUNG CANCER
     Dosage: ON DAY 1 OF EACH 21?DAY CYCLE (EVERY 3 WEEKS) ?MOST RECENT DOSE OF ATEZOLIZUMAB PRIOR TO SAE ONSET O
     Route: 041
     Dates: start: 20190403
  9. ROXERA [Concomitant]
     Active Substance: ROSUVASTATIN CALCIUM
     Indication: MYOCARDIAL ISCHAEMIA
     Dates: start: 2016
  10. PREDNISOLONE. [Concomitant]
     Active Substance: PREDNISOLONE
     Indication: AUTOIMMUNE EYE DISORDER
     Route: 048
     Dates: start: 20190614
  11. PREDNISOLONE. [Concomitant]
     Active Substance: PREDNISOLONE
     Route: 048
     Dates: start: 20190630, end: 20190630
  12. PREDNISOLONE. [Concomitant]
     Active Substance: PREDNISOLONE
     Route: 048
     Dates: start: 20190701, end: 20190706
  13. ROXERA [Concomitant]
     Active Substance: ROSUVASTATIN CALCIUM
  14. AMLODIPIN [Concomitant]
     Active Substance: AMLODIPINE BESYLATE
     Indication: HYPERTENSION
  15. ELIQUIS [Concomitant]
     Active Substance: APIXABAN
     Indication: ATRIAL FIBRILLATION
     Dates: start: 2013
  16. NEXIUM [Concomitant]
     Active Substance: ESOMEPRAZOLE MAGNESIUM
     Indication: GASTRIC ULCER
     Dates: start: 2017
  17. SOTALOL. [Concomitant]
     Active Substance: SOTALOL
     Indication: ATRIAL FIBRILLATION
     Dates: start: 20190618
  18. DEXAMETHASONE. [Concomitant]
     Active Substance: DEXAMETHASONE
     Route: 048
     Dates: start: 20190716
  19. CONCOR [Concomitant]
     Active Substance: BISOPROLOL FUMARATE
     Indication: HYPERTENSION

REACTIONS (1)
  - Myocarditis [Fatal]

NARRATIVE: CASE EVENT DATE: 20190728
